FAERS Safety Report 21977228 (Version 4)
Quarter: 2023Q1

REPORT INFORMATION
  Report Type: Spontaneous
  Country: IT (occurrence: IT)
  Receive Date: 20230210
  Receipt Date: 20230324
  Transmission Date: 20230418
  Serious: Yes (Other)
  Sender: FDA-Public Use
  Company Number: None

PATIENT
  Age: 58 Year
  Sex: Male
  Weight: 80 kg

DRUGS (2)
  1. BEOVU [Suspect]
     Active Substance: BROLUCIZUMAB-DBLL
     Indication: Macular oedema
     Dosage: 6 MG DI BROLUCIZUMAB MEDIANTE INIEZIONE (INTRAVITREAL) INTRAVITREALE
     Route: 031
     Dates: start: 20230116, end: 20230116
  2. ASPIRIN [Concomitant]
     Active Substance: ASPIRIN
     Indication: Retinal vein thrombosis
     Dosage: 1 DOSAGE FORM, QD (1 CPR /DIE .
     Route: 048
     Dates: start: 2016

REACTIONS (3)
  - Hypertonia [Recovering/Resolving]
  - Eye inflammation [Recovering/Resolving]
  - Visual impairment [Recovering/Resolving]

NARRATIVE: CASE EVENT DATE: 20230117
